FAERS Safety Report 11701681 (Version 6)
Quarter: 2018Q2

REPORT INFORMATION
  Report Type: Spontaneous
  Country: US (occurrence: US)
  Receive Date: 20151105
  Receipt Date: 20180419
  Transmission Date: 20180711
  Serious: Yes (Congenital Anomaly, Other)
  Sender: FDA-Public Use
  Company Number: PHEH2015US022415

PATIENT
  Sex: Male

DRUGS (2)
  1. ZOFRAN [Suspect]
     Active Substance: ONDANSETRON HYDROCHLORIDE
     Indication: FOETAL EXPOSURE DURING PREGNANCY
     Dosage: MOTHER^S DOSE: UNK, PRN
     Route: 064
  2. ONDANSETRON DR REDDY [Suspect]
     Active Substance: ONDANSETRON
     Indication: FOETAL EXPOSURE DURING PREGNANCY
     Dosage: MOTHER DOSE: 04 MG EVERY 06 HOURS (Q6H)
     Route: 064

REACTIONS (15)
  - Foetal exposure during pregnancy [Unknown]
  - Upper respiratory tract infection [Unknown]
  - Multiple congenital abnormalities [Unknown]
  - Anhedonia [Unknown]
  - Anxiety [Unknown]
  - Pain [Unknown]
  - Congenital anomaly [Unknown]
  - Ventricular septal defect [Unknown]
  - Congenital umbilical hernia [Unknown]
  - Emotional distress [Unknown]
  - Injury [Unknown]
  - Nasopharyngitis [Unknown]
  - Rhinitis [Unknown]
  - Heart disease congenital [Unknown]
  - Otitis media acute [Unknown]
